FAERS Safety Report 8028002-7 (Version None)
Quarter: 2012Q1

REPORT INFORMATION
  Report Type: 
  Country: None (occurrence: None)
  Receive Date: 20120106
  Receipt Date: 20110309
  Transmission Date: 20120608
  Serious: Yes (Death)
  Sender: FDA-Public Use
  Company Number: US-MYLANLABS-2011S1004839

PATIENT
  Sex: Male

DRUGS (3)
  1. PHENYTOIN SODIUM CAP [Suspect]
     Indication: CONVULSION
     Dates: start: 20090216, end: 20090310
  2. PHENYTOIN SODIUM [Suspect]
     Indication: CONVULSION
     Dates: start: 20090310
  3. FOSPHENYTOIN [Suspect]
     Indication: CONVULSION
     Route: 042
     Dates: start: 20090216, end: 20090218

REACTIONS (3)
  - TOXIC EPIDERMAL NECROLYSIS [None]
  - STEVENS-JOHNSON SYNDROME [None]
  - DRUG RASH WITH EOSINOPHILIA AND SYSTEMIC SYMPTOMS [None]
